FAERS Safety Report 13553209 (Version 3)
Quarter: 2018Q1

REPORT INFORMATION
  Report Type: Spontaneous
  Country: DE (occurrence: DE)
  Receive Date: 20170517
  Receipt Date: 20180123
  Transmission Date: 20180508
  Serious: Yes (Hospitalization, Other)
  Sender: FDA-Public Use
  Company Number: DE-WEST-WARD PHARMACEUTICALS CORP.-DE-H14001-17-01449

PATIENT
  Age: 59 Year
  Sex: Male

DRUGS (4)
  1. ADRIAMYCIN [Suspect]
     Active Substance: DOXORUBICIN HYDROCHLORIDE
     Indication: BLADDER CANCER
     Route: 065
  2. METHOTREXATE. [Concomitant]
     Active Substance: METHOTREXATE
     Indication: BLADDER CANCER
     Route: 065
  3. CISPLATIN. [Concomitant]
     Active Substance: CISPLATIN
     Indication: BLADDER CANCER
     Route: 065
  4. VINBLASTINE [Concomitant]
     Active Substance: VINBLASTINE
     Indication: BLADDER CANCER
     Route: 065

REACTIONS (8)
  - Coronary artery disease [Unknown]
  - Electrocardiogram T wave amplitude decreased [Unknown]
  - Chest pain [Recovering/Resolving]
  - Myocardial necrosis marker increased [Unknown]
  - Left ventricular dysfunction [Unknown]
  - Electrocardiogram ST segment depression [Unknown]
  - Ventricular fibrillation [Unknown]
  - Cardiotoxicity [Recovering/Resolving]
